FAERS Safety Report 14546249 (Version 1)
Quarter: 2018Q1

REPORT INFORMATION
  Report Type: Spontaneous
  Country: FR (occurrence: FR)
  Receive Date: 20180219
  Receipt Date: 20180219
  Transmission Date: 20180509
  Serious: Yes (Other)
  Sender: FDA-Public Use
  Company Number: FR-ROCHE-2073089

PATIENT
  Age: 51 Year
  Sex: Female

DRUGS (2)
  1. ZELBORAF [Suspect]
     Active Substance: VEMURAFENIB
     Indication: MALIGNANT MELANOMA
     Dosage: (CF COMMENTAIRE)
     Route: 048
     Dates: start: 20170413, end: 20170718
  2. COTELLIC [Suspect]
     Active Substance: COBIMETINIB
     Indication: MALIGNANT MELANOMA
     Dosage: (CF COMMENTAIRE)
     Route: 048
     Dates: start: 20170413, end: 20170718

REACTIONS (2)
  - Rash maculo-papular [Recovered/Resolved]
  - Retinal phototoxicity [Recovered/Resolved]

NARRATIVE: CASE EVENT DATE: 20170421
